FAERS Safety Report 9020371 (Version 1)
Quarter: 2013Q1

REPORT INFORMATION
  Report Type: Spontaneous
  Country: US (occurrence: US)
  Receive Date: 20130119
  Receipt Date: 20130119
  Transmission Date: 20140127
  Serious: No
  Sender: FDA-Public Use
  Company Number: US-ALLERGAN-1208156US

PATIENT
  Sex: Female

DRUGS (8)
  1. BOTOX? [Suspect]
     Indication: MIGRAINE
     Dosage: UNK
     Route: 030
     Dates: start: 20120405, end: 20120405
  2. SYMBICORT [Concomitant]
     Indication: ASTHMA
     Dosage: 2 DF, BID
     Route: 048
  3. ALBUTEROL [Concomitant]
     Indication: ASTHMA
     Dosage: UNK
     Route: 048
  4. METHADONE [Concomitant]
     Indication: ARTHRITIS
     Dosage: 10 MG, TID
     Route: 048
  5. METHADONE [Concomitant]
     Indication: PAIN
  6. PROMETHAZINE [Concomitant]
     Indication: NAUSEA
     Dosage: THREE TIMES A DAY, PRN
     Route: 048
     Dates: start: 2007
  7. TOPAMAX [Concomitant]
     Indication: MIGRAINE
     Dosage: UNK
     Route: 048
  8. NEXIUM [Concomitant]
     Indication: GASTROOESOPHAGEAL REFLUX DISEASE
     Dosage: 40 MG, QD
     Route: 048

REACTIONS (7)
  - Haematuria [Not Recovered/Not Resolved]
  - Pollakiuria [Unknown]
  - Nausea [Unknown]
  - Back pain [Unknown]
  - Abdominal distension [Unknown]
  - Abdominal pain lower [Unknown]
  - Injection site pain [Unknown]
